FAERS Safety Report 14468114 (Version 1)
Quarter: 2018Q1

REPORT INFORMATION
  Report Type: Spontaneous
  Country: US (occurrence: US)
  Receive Date: 20180131
  Receipt Date: 20180131
  Transmission Date: 20180509
  Serious: No
  Sender: FDA-Public Use
  Company Number: US-TEVA-768288ACC

PATIENT
  Sex: Female

DRUGS (2)
  1. NORETHINDRONE W/ETHINYLESTRADIOL [Suspect]
     Active Substance: ETHINYL ESTRADIOL\NORETHINDRONE
     Indication: FIBROSIS
     Route: 065
  2. NORETHINDRONE W/ETHINYLESTRADIOL [Suspect]
     Active Substance: ETHINYL ESTRADIOL\NORETHINDRONE
     Indication: ENDOMETRIOSIS

REACTIONS (2)
  - Vaginal haemorrhage [Unknown]
  - Metrorrhagia [Unknown]
